FAERS Safety Report 7712809-7 (Version None)
Quarter: 2011Q3

REPORT INFORMATION
  Report Type: 
  Country: None (occurrence: None)
  Receive Date: 20110826
  Receipt Date: 20110824
  Transmission Date: 20111222
  Serious: Yes (Other)
  Sender: FDA-Public Use
  Company Number: GB-VIIV HEALTHCARE LIMITED-B0741956A

PATIENT
  Age: 69 Year
  Sex: Female

DRUGS (4)
  1. INSULIN [Concomitant]
  2. ABACAVIR SULFATE AND LAMIVUDINE [Concomitant]
  3. ATAZANAVIR [Concomitant]
  4. MARAVIROC [Suspect]
     Indication: HIV TROPISM TEST
     Route: 048

REACTIONS (1)
  - LIVER FUNCTION TEST ABNORMAL [None]
